FAERS Safety Report 13824674 (Version 5)
Quarter: 2018Q1

REPORT INFORMATION
  Report Type: Spontaneous
  Country: US (occurrence: US)
  Receive Date: 20170802
  Receipt Date: 20180119
  Transmission Date: 20180508
  Serious: Yes (Hospitalization)
  Sender: FDA-Public Use
  Company Number: US-AEGERION PHARMACEUTICAL, INC-AEGR003144

PATIENT
  Age: 1 Year
  Sex: Male
  Weight: 7.53 kg

DRUGS (7)
  1. MYALEPT [Suspect]
     Active Substance: METRELEPTIN
     Dosage: 0.25 MG, QD
     Route: 058
     Dates: start: 20160629
  2. MYALEPT [Suspect]
     Active Substance: METRELEPTIN
     Dosage: 0.4 MG, UNK
     Route: 058
     Dates: start: 20170428
  3. MYALEPT [Suspect]
     Active Substance: METRELEPTIN
     Indication: CONGENITAL GENERALISED LIPODYSTROPHY
     Dosage: 0.5 MG, QD (EVERY MORNING)
     Route: 058
     Dates: start: 20160318
  4. MYALEPT [Suspect]
     Active Substance: METRELEPTIN
     Dosage: 0.3 MG, QD
     Route: 058
     Dates: start: 20170317
  5. MYALEPT [Suspect]
     Active Substance: METRELEPTIN
     Dosage: 0.45 MG, UNK
     Route: 058
     Dates: start: 20170808
  6. MYALEPT [Suspect]
     Active Substance: METRELEPTIN
     Dosage: 0.5 MG, QD
     Route: 058
     Dates: start: 20160829
  7. MULTIVITAMIN [Concomitant]
     Active Substance: VITAMINS
     Indication: PRODUCT USED FOR UNKNOWN INDICATION
     Route: 048

REACTIONS (16)
  - Rash pruritic [Recovered/Resolved]
  - Decreased appetite [Recovered/Resolved]
  - Iron deficiency anaemia [Recovered/Resolved]
  - Malnutrition [Recovered/Resolved]
  - Incorrect dosage administered [Unknown]
  - Weight gain poor [Recovered/Resolved]
  - Iron deficiency [Recovered/Resolved]
  - Body height abnormal [Recovered/Resolved]
  - Accidental overdose [Recovered/Resolved]
  - Nausea [Recovered/Resolved]
  - Vomiting [Recovered/Resolved]
  - Urticaria [Recovered/Resolved]
  - Zinc deficiency [Recovered/Resolved]
  - Blood triglycerides increased [Unknown]
  - Vitamin D decreased [Unknown]
  - Balanoposthitis [Unknown]

NARRATIVE: CASE EVENT DATE: 2016
